FAERS Safety Report 9200671 (Version 1)
Quarter: 2013Q1

REPORT INFORMATION
  Report Type: Spontaneous
  Country: IT (occurrence: IT)
  Receive Date: 20130331
  Receipt Date: 20130331
  Transmission Date: 20140127
  Serious: Yes (Other)
  Sender: FDA-Public Use
  Company Number: IT-TEVA-394090ISR

PATIENT
  Age: 42 Year
  Sex: Female

DRUGS (2)
  1. KETOPROFENE [Suspect]
     Indication: TONSILLITIS
     Dates: start: 20130215, end: 20130215
  2. AMOXICILLINA [Suspect]
     Indication: TONSILLITIS
     Dates: start: 20130215, end: 20130215

REACTIONS (4)
  - Pruritus generalised [Recovering/Resolving]
  - Cyanosis [Recovering/Resolving]
  - Malaise [Recovering/Resolving]
  - Blood potassium decreased [None]
